FAERS Safety Report 11739978 (Version 1)
Quarter: 2015Q4

REPORT INFORMATION
  Report Type: Spontaneous
  Country: US (occurrence: US)
  Receive Date: 20151113
  Receipt Date: 20151113
  Transmission Date: 20160304
  Serious: Yes (Hospitalization)
  Sender: FDA-Public Use
  Company Number: US-CELGENEUS-USA-2015075489

PATIENT
  Age: 58 Year
  Sex: Female

DRUGS (3)
  1. THALOMID [Suspect]
     Active Substance: THALIDOMIDE
     Indication: PYODERMA
     Dosage: 50 MILLIGRAM
     Route: 048
     Dates: start: 20150528, end: 20150824
  2. THALOMID [Suspect]
     Active Substance: THALIDOMIDE
     Indication: DIPLOPIA
  3. THALOMID [Suspect]
     Active Substance: THALIDOMIDE
     Indication: NEUROPATHY PERIPHERAL

REACTIONS (1)
  - Pyoderma [Recovering/Resolving]

NARRATIVE: CASE EVENT DATE: 201507
